FAERS Safety Report 9161682 (Version 1)
Quarter: 2013Q1

REPORT INFORMATION
  Report Type: Spontaneous
  Country: US (occurrence: US)
  Receive Date: 20130314
  Receipt Date: 20130314
  Transmission Date: 20140127
  Serious: No
  Sender: FDA-Public Use
  Company Number: US-009507513-1303USA006488

PATIENT
  Age: 48 Year
  Sex: Female
  Weight: 72.56 kg

DRUGS (1)
  1. NUVARING [Suspect]
     Indication: CONTRACEPTION
     Dosage: 3 WEEKS CONTINUOUSLY
     Route: 067
     Dates: start: 20130303

REACTIONS (1)
  - Metrorrhagia [Not Recovered/Not Resolved]
